FAERS Safety Report 18194545 (Version 1)
Quarter: 2020Q3

REPORT INFORMATION
  Report Type: Spontaneous
  Country: US (occurrence: US)
  Receive Date: 20200826
  Receipt Date: 20200826
  Transmission Date: 20201103
  Serious: No
  Sender: FDA-Public Use
  Company Number: US-ASTRAZENECA-2020SF01994

PATIENT
  Sex: Female

DRUGS (1)
  1. FASENRA [Suspect]
     Active Substance: BENRALIZUMAB
     Indication: ASTHMA
     Dosage: FASENRA PEN 30, ONCE EVERY MONTH FOR 3 MONTHS, THEN EVERY 2 MONTHS THEREAFTER
     Route: 058

REACTIONS (4)
  - Asthma [Unknown]
  - Malaise [Unknown]
  - Feeling hot [Unknown]
  - Therapeutic response shortened [Unknown]
